FAERS Safety Report 17890196 (Version 2)
Quarter: 2020Q2

REPORT INFORMATION
  Report Type: Spontaneous
  Country: AT (occurrence: AT)
  Receive Date: 20200612
  Receipt Date: 20200625
  Transmission Date: 20200714
  Serious: Yes (Hospitalization, Other)
  Sender: FDA-Public Use
  Company Number: AT-SA-2020SA148313

PATIENT

DRUGS (3)
  1. PRALUENT [Suspect]
     Active Substance: ALIROCUMAB
     Indication: LOW DENSITY LIPOPROTEIN ABNORMAL
     Dosage: 75 MG
  2. INSULIN [Concomitant]
     Active Substance: INSULIN NOS
     Indication: TYPE 1 DIABETES MELLITUS
     Dosage: UNK
  3. ATOZET [Concomitant]
     Active Substance: ATORVASTATIN CALCIUM\EZETIMIBE
     Indication: LOW DENSITY LIPOPROTEIN ABNORMAL
     Dosage: UNK

REACTIONS (8)
  - Renal failure [Unknown]
  - Left ventricular dysfunction [Unknown]
  - Myalgia [Unknown]
  - Low density lipoprotein increased [Unknown]
  - Acute myocardial infarction [Unknown]
  - Therapeutic response decreased [Unknown]
  - Ischaemic cardiomyopathy [Unknown]
  - Lipid metabolism disorder [Unknown]

NARRATIVE: CASE EVENT DATE: 2018
